FAERS Safety Report 8771978 (Version 3)
Quarter: 2012Q4

REPORT INFORMATION
  Report Type: Report from Study
  Country: US (occurrence: US)
  Receive Date: 20120905
  Receipt Date: 20121012
  Transmission Date: 20130627
  Serious: Yes (Hospitalization)
  Sender: FDA-Public Use
  Company Number: PHHO2012US012495

PATIENT
  Age: 75 Year
  Sex: Male
  Weight: 99.6 kg

DRUGS (14)
  1. AFINITOR [Suspect]
     Indication: LYMPHOMA
     Dosage: 5 mg, daily for 28 days
     Route: 048
     Dates: start: 20120806, end: 20120818
  2. LENALIDOMIDE [Suspect]
     Indication: LYMPHOMA
     Dosage: 15 mg, daily for 21 days
     Dates: start: 20120806, end: 20120818
  3. ASPIRIN [Concomitant]
     Dosage: 81 mg, QD
     Route: 048
     Dates: end: 20120830
  4. IMDUR [Concomitant]
     Dosage: 60 mg, QD
     Route: 048
     Dates: end: 20120830
  5. ATIVAN [Concomitant]
     Dosage: 0.5 mg, PRN4SD
     Route: 048
     Dates: end: 20120830
  6. METFORMIN [Concomitant]
     Dosage: 1000 mg,
     Route: 048
     Dates: end: 20120830
  7. COMPAZINE [Concomitant]
     Dosage: 10 mg, PRN4SD
     Route: 048
     Dates: end: 20120830
  8. ROXICODONE [Concomitant]
     Dosage: 5 mg, PRN (every 4 hours)
     Dates: end: 20120830
  9. SENNA [Concomitant]
     Dosage: 50 mg, QD
     Route: 048
     Dates: end: 20120830
  10. SIMVASTATIN [Concomitant]
     Dosage: 40 mg, QD
     Route: 048
     Dates: end: 20120830
  11. VITAMIN D [Concomitant]
     Dosage: UNK
     Route: 048
     Dates: end: 20120830
  12. NITROGLYCERIN [Concomitant]
  13. RITUXAN [Concomitant]
  14. CHOP [Concomitant]

REACTIONS (6)
  - Hydronephrosis [Unknown]
  - Deep vein thrombosis [Unknown]
  - Platelet count decreased [Unknown]
  - Neutrophil count decreased [Unknown]
  - Pancytopenia [None]
  - Dehydration [None]
